FAERS Safety Report 6408924-0 (Version None)
Quarter: 2009Q4

REPORT INFORMATION
  Report Type: 
  Country: None (occurrence: None)
  Receive Date: 20091021
  Receipt Date: 20091009
  Transmission Date: 20100525
  Serious: Yes (Hospitalization)
  Sender: FDA-Public Use
  Company Number: US-ELI_LILLY_AND_COMPANY-US200910003216

PATIENT
  Sex: Male

DRUGS (1)
  1. ZYPREXA [Suspect]
     Dosage: 120 MG, UNK
     Dates: start: 20090301, end: 20091001

REACTIONS (3)
  - HALLUCINATION [None]
  - HOSPITALISATION [None]
  - OVERDOSE [None]
